FAERS Safety Report 4300180-2 (Version None)
Quarter: 2004Q1

REPORT INFORMATION
  Report Type: 
  Country: None (occurrence: None)
  Receive Date: 20040218
  Receipt Date: 20040210
  Transmission Date: 20041129
  Serious: Yes (Death, Hospitalization)
  Sender: FDA-Public Use
  Company Number: FR-SHR-04-020479

PATIENT
  Age: 70 Year
  Sex: Female
  Weight: 113 kg

DRUGS (10)
  1. SOTALOL HCL [Suspect]
     Dosage: 80MG, ORAL
     Route: 048
  2. PRAZOSIN HCL [Suspect]
     Dosage: ORAL
     Route: 048
  3. ENALAPRIL MALEATE [Suspect]
     Dosage: 20 MG, ORAL
     Route: 048
  4. ALDACTONE [Suspect]
     Dosage: 75
  5. LOXEN [Concomitant]
  6. KALEORID [Concomitant]
  7. OMEPRAZOLE [Concomitant]
  8. MUCOMYST [Concomitant]
  9. STILNOX/FRA/(ZOLPIDEM) [Concomitant]
  10. LYSODREN [Suspect]
     Indication: HYPERADRENOCORTICISM
     Dosage: 500 MG 3XD/DAY
     Dates: start: 20031121, end: 20031123

REACTIONS (13)
  - ADRENAL INSUFFICIENCY [None]
  - ADRENAL NEOPLASM [None]
  - ANAEMIA [None]
  - CONDITION AGGRAVATED [None]
  - DRUG INEFFECTIVE [None]
  - GENERAL PHYSICAL HEALTH DETERIORATION [None]
  - HYPERKALAEMIA [None]
  - HYPOKALAEMIA [None]
  - LYMPHOPENIA [None]
  - MALIGNANT NEOPLASM PROGRESSION [None]
  - SHOCK HAEMORRHAGIC [None]
  - THROMBOCYTOPENIA [None]
  - TUMOUR NECROSIS [None]
